FAERS Safety Report 7057546-X (Version None)
Quarter: 2010Q4

REPORT INFORMATION
  Report Type: 
  Country: None (occurrence: None)
  Receive Date: 20101022
  Receipt Date: 20101018
  Transmission Date: 20110411
  Serious: Yes (Other)
  Sender: FDA-Public Use
  Company Number: US-WYE-H18215710

PATIENT
  Age: 58 Year
  Sex: Male
  Weight: 81.72 kg

DRUGS (2)
  1. FIBERCON [Suspect]
     Indication: NUTRITIONAL SUPPORT
     Dosage: ONE TABLET TWICE DAILY RECOMMENDED BY HIS GASTROENTEROLOGIST
     Route: 048
     Dates: start: 20011001, end: 20101009
  2. TOPROL-XL [Concomitant]

REACTIONS (3)
  - FOREIGN BODY ASPIRATION [None]
  - PNEUMONIA [None]
  - PRODUCT SIZE ISSUE [None]
